FAERS Safety Report 20076366 (Version 1)
Quarter: 2021Q4

REPORT INFORMATION
  Report Type: Spontaneous
  Country: US (occurrence: US)
  Receive Date: 20211116
  Receipt Date: 20211116
  Transmission Date: 20220303
  Serious: Yes (Hospitalization)
  Sender: FDA-Public Use
  Company Number: US-CELGENE-USA-20211103426

PATIENT
  Sex: Female
  Weight: 45.854 kg

DRUGS (23)
  1. REVLIMID [Suspect]
     Active Substance: LENALIDOMIDE
     Indication: Myelodysplastic syndrome
     Dosage: 5 MILLIGRAM
     Route: 048
     Dates: start: 20211012
  2. ONDANSETRON HCL [Concomitant]
     Active Substance: ONDANSETRON HYDROCHLORIDE
     Indication: Product used for unknown indication
     Route: 048
     Dates: start: 20211008
  3. Folivane [Concomitant]
     Indication: Product used for unknown indication
     Route: 048
     Dates: start: 20211008
  4. ROSUVASTATIN CALCIUM [Concomitant]
     Active Substance: ROSUVASTATIN CALCIUM
     Indication: Product used for unknown indication
     Dosage: 5 MILLIGRAM
     Route: 048
     Dates: start: 20211008
  5. FLUCONAZOLE [Concomitant]
     Active Substance: FLUCONAZOLE
     Indication: Product used for unknown indication
     Route: 048
     Dates: start: 20211008, end: 20211012
  6. METOPROLOL TARTRATE [Concomitant]
     Active Substance: METOPROLOL TARTRATE
     Indication: Product used for unknown indication
     Dosage: 25 MILLIGRAM
     Route: 048
     Dates: start: 20211008
  7. TORSEMIDE [Concomitant]
     Active Substance: TORSEMIDE
     Indication: Product used for unknown indication
     Dosage: 10 MILLIGRAM
     Route: 048
     Dates: start: 20211008
  8. POTASSIUM CHLORIDE [Concomitant]
     Active Substance: POTASSIUM CHLORIDE
     Indication: Product used for unknown indication
     Dosage: 20 MILLIEQUIVALENTS
     Route: 048
     Dates: start: 20211008
  9. ALBUTEROL SULFATE [Concomitant]
     Active Substance: ALBUTEROL SULFATE
     Indication: Product used for unknown indication
     Dosage: 108(90 BASE)
     Route: 065
     Dates: start: 20211008
  10. LOTEMAX [Concomitant]
     Active Substance: LOTEPREDNOL ETABONATE
     Indication: Product used for unknown indication
     Dosage: .5 PERCENT
     Route: 047
     Dates: start: 20211008
  11. GABAPENTIN [Concomitant]
     Active Substance: GABAPENTIN
     Indication: Product used for unknown indication
     Dosage: 2 TABS
     Route: 048
     Dates: start: 20211008
  12. OMEPRAZOLE [Concomitant]
     Active Substance: OMEPRAZOLE
     Indication: Product used for unknown indication
     Dosage: 20 MILLIGRAM
     Route: 048
     Dates: start: 20211008
  13. Ropinrole HCL [Concomitant]
     Indication: Product used for unknown indication
     Dosage: .25 MILLIGRAM
     Route: 048
     Dates: start: 20211008
  14. MUPIROCIN [Concomitant]
     Active Substance: MUPIROCIN
     Indication: Product used for unknown indication
     Route: 065
     Dates: start: 20211008
  15. BACTRIM DS [Concomitant]
     Active Substance: SULFAMETHOXAZOLE\TRIMETHOPRIM
     Indication: Product used for unknown indication
     Dosage: 180-160 MG
     Route: 048
     Dates: start: 20211008, end: 20211012
  16. ERGOCALCIFEROL [Concomitant]
     Active Substance: ERGOCALCIFEROL
     Indication: Product used for unknown indication
     Route: 048
     Dates: start: 20211008
  17. CEPHALEXIN [Concomitant]
     Active Substance: CEPHALEXIN
     Indication: Product used for unknown indication
     Route: 048
     Dates: start: 20211008
  18. FUROSEMIDE [Concomitant]
     Active Substance: FUROSEMIDE
     Indication: Product used for unknown indication
     Route: 048
     Dates: start: 20211008, end: 20211012
  19. HYDROCHLOROTHIAZIDE\LOSARTAN POTASSIUM [Concomitant]
     Active Substance: HYDROCHLOROTHIAZIDE\LOSARTAN POTASSIUM
     Indication: Product used for unknown indication
     Dosage: 100-12.5MG
     Route: 048
     Dates: start: 20211008
  20. REFRESH OPTIVE [Concomitant]
     Active Substance: CARBOXYMETHYLCELLULOSE SODIUM\GLYCERIN
     Indication: Product used for unknown indication
     Dosage: 0.5-0.9%
     Route: 047
     Dates: start: 20211012
  21. ASPIRIN [Concomitant]
     Active Substance: ASPIRIN
     Indication: Product used for unknown indication
     Dosage: 81 MILLIGRAM
     Route: 048
     Dates: start: 20211012
  22. VITAMIN B12 [Concomitant]
     Active Substance: CYANOCOBALAMIN
     Indication: Product used for unknown indication
     Dosage: 500 MICROGRAM
     Route: 048
     Dates: start: 20211012
  23. WIXELA INHUB [Concomitant]
     Active Substance: FLUTICASONE PROPIONATE\SALMETEROL XINAFOATE
     Indication: Product used for unknown indication
     Dosage: 250-50
     Route: 065
     Dates: start: 20211008

REACTIONS (2)
  - Full blood count decreased [Unknown]
  - Pulmonary oedema [Unknown]

NARRATIVE: CASE EVENT DATE: 20210101
